FAERS Safety Report 26082489 (Version 1)
Quarter: 2025Q4

REPORT INFORMATION
  Report Type: Spontaneous
  Country: US (occurrence: None)
  Receive Date: 20251121
  Receipt Date: 20251121
  Transmission Date: 20260118
  Serious: Yes (Hospitalization)
  Sender: FDA-CTU
  Company Number: None

PATIENT
  Age: 65 Year
  Sex: Female

DRUGS (1)
  1. PIRFENIDONE [Suspect]
     Active Substance: PIRFENIDONE
     Dosage: UNKNOWN

REACTIONS (3)
  - Lung disorder [None]
  - Dyspnoea [None]
  - Peroneal nerve palsy [None]
